FAERS Safety Report 5299572-7 (Version None)
Quarter: 2007Q2

REPORT INFORMATION
  Report Type: 
  Country: None (occurrence: None)
  Receive Date: 20070417
  Receipt Date: 20070404
  Transmission Date: 20071010
  Serious: Yes (Other)
  Sender: FDA-Public Use
  Company Number: PHEH2007US04152

PATIENT
  Age: 53 Year
  Sex: Female

DRUGS (3)
  1. ZELNORM [Suspect]
     Indication: IRRITABLE BOWEL SYNDROME
     Dosage: 6 MG, BID
     Dates: start: 20060901, end: 20070404
  2. PLAVIX [Concomitant]
     Dosage: UNK, UNK
  3. ASPIRIN [Concomitant]
     Dosage: UNK, UNK

REACTIONS (2)
  - CATHETERISATION CARDIAC ABNORMAL [None]
  - CHEST PAIN [None]
